FAERS Safety Report 6408595-3 (Version None)
Quarter: 2009Q4

REPORT INFORMATION
  Report Type: 
  Country: None (occurrence: None)
  Receive Date: 20091021
  Receipt Date: 20091019
  Transmission Date: 20100525
  Serious: Yes (Other)
  Sender: FDA-Public Use
  Company Number: US-TEVA-212795USA

PATIENT
  Sex: Female
  Weight: 36.32 kg

DRUGS (1)
  1. PLAN B ONE-STEP [Suspect]
     Indication: POST COITAL CONTRACEPTION
     Route: 048
     Dates: start: 20091005, end: 20091005

REACTIONS (3)
  - DRUG INEFFECTIVE [None]
  - HAEMATEMESIS [None]
  - PREGNANCY AFTER POST COITAL CONTRACEPTION [None]
